FAERS Safety Report 5128068-8 (Version None)
Quarter: 2006Q4

REPORT INFORMATION
  Report Type: 
  Country: None (occurrence: None)
  Receive Date: 20061010
  Receipt Date: 20060926
  Transmission Date: 20070319
  Serious: Yes (Death)
  Sender: FDA-Public Use
  Company Number: 148004ISR

PATIENT
  Age: 43 Year
  Sex: Female

DRUGS (1)
  1. CITALOPRAM 10MG FILM-COATED TABLETS (CITALOPRAM) [Suspect]
     Indication: DEPRESSION
     Dosage: 10 MG
     Dates: start: 20030422, end: 20060201

REACTIONS (1)
  - DRUG TOXICITY [None]
